FAERS Safety Report 10186168 (Version 1)
Quarter: 2014Q2

REPORT INFORMATION
  Report Type: Spontaneous
  Country: CA (occurrence: CA)
  Receive Date: 20140521
  Receipt Date: 20140521
  Transmission Date: 20141212
  Serious: Yes (Other)
  Sender: FDA-Public Use
  Company Number: CA-AMGEN INC.-CANSP2014035897

PATIENT
  Age: 70 Year
  Sex: Female

DRUGS (16)
  1. PROLIA [Suspect]
     Indication: OSTEOPOROSIS POSTMENOPAUSAL
     Dosage: 60 MG, Q6MO
     Route: 058
     Dates: start: 20130424
  2. HUMALOG [Concomitant]
  3. EUROCAL [Concomitant]
  4. VALSARTAN [Concomitant]
  5. FLOVENT [Concomitant]
  6. VENTOLIN                           /00139501/ [Concomitant]
  7. LEVEMIR [Concomitant]
  8. SYNTHROID [Concomitant]
  9. D-TABS [Concomitant]
     Dosage: UNK UNK, QWK
  10. ACETAMINOPHEN [Concomitant]
     Indication: FIBROMYALGIA
  11. ZYLOPRIM [Concomitant]
  12. AMLODIPINE [Concomitant]
  13. PANTOLOC                           /01263204/ [Concomitant]
  14. METFORMIN [Concomitant]
  15. ROSUVASTATIN [Concomitant]
  16. APO-DOXEPIN [Concomitant]

REACTIONS (1)
  - Renal impairment [Recovered/Resolved]
